FAERS Safety Report 7931657-6 (Version None)
Quarter: 2011Q4

REPORT INFORMATION
  Report Type: 
  Country: None (occurrence: None)
  Receive Date: 20111121
  Receipt Date: 20111111
  Transmission Date: 20120403
  Serious: Yes (Hospitalization)
  Sender: FDA-Public Use
  Company Number: PHHO2011NL018973

PATIENT
  Sex: Male
  Weight: 78 kg

DRUGS (3)
  1. MYCOPHENOLIC ACID [Suspect]
     Indication: GRAFT VERSUS HOST DISEASE
  2. COTRIM [Concomitant]
     Indication: PROPHYLAXIS
     Dosage: 480 MG, UNK
     Route: 048
     Dates: start: 20110406, end: 20111012
  3. SANDIMMUNE [Suspect]
     Indication: GRAFT VERSUS HOST DISEASE

REACTIONS (1)
  - NEUTROPENIC SEPSIS [None]
